FAERS Safety Report 9699347 (Version 3)
Quarter: 2015Q3

REPORT INFORMATION
  Report Type: Spontaneous
  Country: US (occurrence: US)
  Receive Date: 20131120
  Receipt Date: 20150803
  Transmission Date: 20151125
  Serious: No
  Sender: FDA-Public Use
  Company Number: US-GILEAD-2008-0015583

PATIENT
  Age: 74 Year
  Sex: Female
  Weight: 60.78 kg

DRUGS (6)
  1. CALCIUM [Concomitant]
     Active Substance: CALCIUM
     Route: 048
  2. VALIUM [Concomitant]
     Active Substance: DIAZEPAM
     Route: 048
  3. LETAIRIS [Suspect]
     Active Substance: AMBRISENTAN
     Indication: PULMONARY ARTERIAL HYPERTENSION
     Route: 048
     Dates: start: 20080218
  4. EQL VITAMIN D [Concomitant]
     Route: 048
  5. BUSPAR [Concomitant]
     Active Substance: BUSPIRONE HYDROCHLORIDE
     Route: 048
  6. CENTRUM SILVER [Concomitant]
     Active Substance: VITAMINS
     Route: 048

REACTIONS (3)
  - Dysphonia [Unknown]
  - Oedema [Unknown]
  - Liver injury [Unknown]
